FAERS Safety Report 21989694 (Version 1)
Quarter: 2023Q1

REPORT INFORMATION
  Report Type: Report from Study
  Country: IT (occurrence: IT)
  Receive Date: 20230214
  Receipt Date: 20230214
  Transmission Date: 20230417
  Serious: Yes (Other)
  Sender: FDA-Public Use
  Company Number: IT-BAXTER-2023BAX011018

PATIENT
  Age: 59 Year
  Sex: Male

DRUGS (6)
  1. PREDNISONE [Suspect]
     Active Substance: PREDNISONE
     Indication: Diffuse large B-cell lymphoma
     Dosage: 100 MG (AS PER RI-CHOP STUDY PROTOCOL)
     Route: 048
     Dates: start: 20210827, end: 20211210
  2. DOXORUBICIN [Suspect]
     Active Substance: DOXORUBICIN
     Indication: Diffuse large B-cell lymphoma
     Dosage: 90 MG (AS PER RI-CHOP STUDY PROTOCOL)
     Route: 042
     Dates: start: 20210827, end: 20211210
  3. RITUXIMAB [Suspect]
     Active Substance: RITUXIMAB
     Indication: Diffuse large B-cell lymphoma
     Dosage: 700 MG (AS PER RI-CHOP STUDY PROTOCOL)
     Route: 042
     Dates: start: 20210901, end: 20220216
  4. CYCLOPHOSPHAMIDE [Suspect]
     Active Substance: CYCLOPHOSPHAMIDE
     Indication: Diffuse large B-cell lymphoma
     Dosage: 1400 MG (AS PER RI-CHOP STUDY PROTOCOL)
     Route: 042
     Dates: start: 20210827, end: 20211210
  5. IBRUTINIB [Suspect]
     Active Substance: IBRUTINIB
     Indication: Diffuse large B-cell lymphoma
     Dosage: 140 MG (AS PER RI-CHOP STUDY PROTOCOL. INITIAL
     Route: 048
     Dates: start: 20210917, end: 20230108
  6. VINCRISTINE [Suspect]
     Active Substance: VINCRISTINE
     Indication: Diffuse large B-cell lymphoma
     Dosage: 2 MG, ROUTE BOLUS AS PER RI-CHOP STUDY PROTOCOL
     Route: 042
     Dates: start: 20210827, end: 20211210

REACTIONS (3)
  - Prostate cancer [Not Recovered/Not Resolved]
  - Adenocarcinoma [Not Recovered/Not Resolved]
  - Off label use [Unknown]

NARRATIVE: CASE EVENT DATE: 20230109
